FAERS Safety Report 4359115-9 (Version None)
Quarter: 2004Q2

REPORT INFORMATION
  Report Type: 
  Country: None (occurrence: None)
  Receive Date: 20040512
  Receipt Date: 20040428
  Transmission Date: 20050107
  Serious: No
  Sender: FDA-Public Use
  Company Number: 2004GB01070

PATIENT
  Age: 60 Year
  Sex: Female

DRUGS (2)
  1. LOSEC [Suspect]
     Indication: GASTRIC ULCER
     Dosage: 10 MG PO
     Route: 048
     Dates: start: 19960101
  2. WARFARIN SODIUM [Concomitant]

REACTIONS (5)
  - ARTHRALGIA [None]
  - CHEST DISCOMFORT [None]
  - FEELING HOT [None]
  - PYREXIA [None]
  - RASH [None]
